FAERS Safety Report 13165631 (Version 3)
Quarter: 2017Q3

REPORT INFORMATION
  Report Type: Report from Study
  Country: FR (occurrence: FR)
  Receive Date: 20170131
  Receipt Date: 20170719
  Transmission Date: 20171127
  Serious: Yes (Other)
  Sender: FDA-Public Use
  Company Number: FR-AMGEN-FRANI2017012330

PATIENT
  Age: 69 Year
  Sex: Male

DRUGS (16)
  1. CARFILZOMIB [Suspect]
     Active Substance: CARFILZOMIB
     Dosage: 56 MG/M2, UNK
     Route: 065
     Dates: start: 20170206
  2. CARFILZOMIB [Suspect]
     Active Substance: CARFILZOMIB
     Dosage: 56 MG, CYCLE 14 D15, D16
     Route: 065
     Dates: start: 20170320
  3. CARFILZOMIB [Suspect]
     Active Substance: CARFILZOMIB
     Dosage: 56 MG, CYCLE 16 D15, D16
     Route: 065
     Dates: start: 20170515
  4. LENALIDOMIDE [Suspect]
     Active Substance: LENALIDOMIDE
     Indication: PLASMA CELL MYELOMA
     Dosage: UNK
     Route: 065
     Dates: start: 201603
  5. DEXAMETHASONE. [Concomitant]
     Active Substance: DEXAMETHASONE
     Dosage: 20 MG, UNK
     Route: 065
     Dates: start: 2016
  6. CARFILZOMIB [Suspect]
     Active Substance: CARFILZOMIB
     Indication: PLASMA CELL MYELOMA
     Dosage: UNK
     Route: 065
     Dates: start: 201603, end: 2016
  7. CARFILZOMIB [Suspect]
     Active Substance: CARFILZOMIB
     Dosage: 56 MG, CYCLE 18 D1, D2
     Route: 065
     Dates: start: 20170626
  8. CARFILZOMIB [Suspect]
     Active Substance: CARFILZOMIB
     Dosage: 56 MG, CYCLE 14 D1, D2 (1 VIAL PER ADMINISTRATION DAY)
     Route: 065
     Dates: start: 20170306
  9. CARFILZOMIB [Suspect]
     Active Substance: CARFILZOMIB
     Dosage: 56 MG, CYCLE 15 D1, D2
     Route: 065
     Dates: start: 20170403
  10. CARFILZOMIB [Suspect]
     Active Substance: CARFILZOMIB
     Dosage: 56 MG, CYCLE 18 D15, D16
     Route: 065
     Dates: start: 20170710
  11. CARFILZOMIB [Suspect]
     Active Substance: CARFILZOMIB
     Dosage: 56 MG, CYCLE 17 D1, D2
     Route: 065
     Dates: start: 20170529
  12. DEXAMETHASONE. [Concomitant]
     Active Substance: DEXAMETHASONE
     Indication: PLASMA CELL MYELOMA
     Dosage: UNK
     Route: 065
     Dates: start: 201603, end: 2016
  13. DEXAMETHASONE. [Concomitant]
     Active Substance: DEXAMETHASONE
     Dosage: UNK, ON DAY 1, 2, 15 AND 16 (4 DAYS PER CYCLE)
     Route: 065
     Dates: start: 20170206
  14. CARFILZOMIB [Suspect]
     Active Substance: CARFILZOMIB
     Dosage: 56 MG, CYCLE 15 D15, D16
     Route: 065
     Dates: start: 20170418
  15. CARFILZOMIB [Suspect]
     Active Substance: CARFILZOMIB
     Dosage: 56 MG, CYCLE 16 D1, D2
     Route: 065
     Dates: start: 20170502
  16. CARFILZOMIB [Suspect]
     Active Substance: CARFILZOMIB
     Dosage: 56 MG, CYCLE 17 D15, D16
     Route: 065
     Dates: start: 20170612

REACTIONS (1)
  - Graft versus host disease in eye [Unknown]

NARRATIVE: CASE EVENT DATE: 2016
